FAERS Safety Report 13091744 (Version 1)
Quarter: 2017Q1

REPORT INFORMATION
  Report Type: Report from Study
  Country: KR (occurrence: KR)
  Receive Date: 20170106
  Receipt Date: 20170106
  Transmission Date: 20170428
  Serious: Yes (Other)
  Sender: FDA-Public Use
  Company Number: KR-ROCHE-1872500

PATIENT

DRUGS (5)
  1. VINCRISTINE [Suspect]
     Active Substance: VINCRISTINE
     Indication: DIFFUSE LARGE B-CELL LYMPHOMA
     Dosage: ON DAY 1
     Route: 065
  2. DOXORUBICIN [Suspect]
     Active Substance: DOXORUBICIN
     Indication: DIFFUSE LARGE B-CELL LYMPHOMA
     Dosage: ON DAY 1
     Route: 065
  3. RITUXIMAB [Suspect]
     Active Substance: RITUXIMAB
     Indication: DIFFUSE LARGE B-CELL LYMPHOMA
     Dosage: ON DAY 1
     Route: 042
  4. CYCLOPHOSPHAMIDE. [Suspect]
     Active Substance: CYCLOPHOSPHAMIDE
     Indication: DIFFUSE LARGE B-CELL LYMPHOMA
     Dosage: ON DAY 1
     Route: 065
  5. PREDNISONE. [Suspect]
     Active Substance: PREDNISONE
     Indication: DIFFUSE LARGE B-CELL LYMPHOMA
     Dosage: FROM DAY 1 TO 5 REPEATED AT 3-WEEK INTERVALS
     Route: 048

REACTIONS (28)
  - Acute myeloid leukaemia [Unknown]
  - Colon cancer [Unknown]
  - Transitional cell carcinoma [Unknown]
  - Fungaemia [Unknown]
  - Pyrexia [Unknown]
  - Anaemia [Unknown]
  - Meningitis bacterial [Unknown]
  - Cardiac failure [Unknown]
  - General physical health deterioration [Unknown]
  - Pneumonia [Unknown]
  - Herpes zoster [Unknown]
  - Urinary tract infection [Unknown]
  - Neuropathy peripheral [Unknown]
  - Thrombocytopenia [Unknown]
  - Papillary thyroid cancer [Unknown]
  - Bacteraemia [Unknown]
  - Nasopharyngeal cancer [Unknown]
  - Disseminated cytomegaloviral infection [Unknown]
  - Cellulitis [Unknown]
  - Gastric cancer [Unknown]
  - Pancreatic carcinoma [Unknown]
  - Colitis [Unknown]
  - Febrile neutropenia [Unknown]
  - Myeloproliferative neoplasm [Unknown]
  - Myelodysplastic syndrome [Unknown]
  - Basal cell carcinoma [Unknown]
  - Prostate cancer [Unknown]
  - Pneumonitis [Unknown]
